FAERS Safety Report 6017707-5 (Version None)
Quarter: 2008Q4

REPORT INFORMATION
  Report Type: 
  Country: None (occurrence: None)
  Receive Date: 20081223
  Receipt Date: 20081219
  Transmission Date: 20090506
  Serious: Yes (Hospitalization)
  Sender: FDA-Public Use
  Company Number: US-ASTRAZENECA-2008UW18326

PATIENT
  Age: 15762 Day
  Sex: Female
  Weight: 63.5 kg

DRUGS (5)
  1. SEROQUEL [Suspect]
     Indication: DEPRESSION
     Dosage: 25 MG, 200 MG, 300 MG
     Route: 048
     Dates: start: 20020901, end: 20051201
  2. CYMBALTA [Concomitant]
  3. KLONOPIN [Concomitant]
  4. TRAZODONE [Concomitant]
  5. REMERON [Concomitant]

REACTIONS (7)
  - BIPOLAR DISORDER [None]
  - CHOLECYSTITIS ACUTE [None]
  - DIABETES MELLITUS [None]
  - HYPERGLYCAEMIA [None]
  - HYPERLIPIDAEMIA [None]
  - OBESITY [None]
  - PANCREATITIS [None]
